FAERS Safety Report 9441461 (Version 3)
Quarter: 2013Q3

REPORT INFORMATION
  Report Type: Spontaneous
  Country: IT (occurrence: IT)
  Receive Date: 20130805
  Receipt Date: 20130826
  Transmission Date: 20140515
  Serious: Yes (Hospitalization, Other)
  Sender: FDA-Public Use
  Company Number: IT-MERCK-1307ITA016187

PATIENT
  Age: 49 Year
  Sex: Male

DRUGS (11)
  1. ESMERON [Suspect]
     Indication: ANAESTHESIA
     Dosage: STRENGTH 10MG/ML; 40 MG +10 MG
     Route: 042
     Dates: start: 20130521, end: 20130521
  2. PROPOFOL FRESENIUS KABI [Suspect]
     Indication: ANAESTHESIA
     Dosage: TOTAL DAILY DOSE: 4 MG/KG/MIN, STRENGTH: 10 MG/ML
     Route: 042
     Dates: start: 20130521, end: 20130521
  3. OMEPRAZOLE [Suspect]
     Indication: PROPHYLAXIS
     Dosage: 40 MG, SINGLE DOSE
     Route: 042
     Dates: start: 20130521, end: 20130521
  4. REMIFENTANIL HYDROCHLORIDE [Suspect]
     Indication: ANAESTHESIA
     Dosage: TOTAL DAILY DOSE: 0.4 MCG/KG/MIN, STRENGTH: 5MG
     Route: 042
     Dates: start: 20130521, end: 20130521
  5. TORADOL [Suspect]
     Indication: POSTOPERATIVE ANALGESIA
     Dosage: 30 MG, TID
     Route: 042
     Dates: start: 20130521, end: 20130522
  6. TORADOL [Suspect]
     Dosage: 30 MG, QD; SINGLE DOSE
     Route: 042
     Dates: start: 20130522
  7. PERFALGAN [Suspect]
     Indication: POSTOPERATIVE ANALGESIA
     Dosage: 1 G, TID
     Route: 042
     Dates: start: 20130521, end: 20130521
  8. PERFALGAN [Suspect]
     Dosage: 1 G QD, SINGLE DOSE
     Dates: start: 20130522
  9. IVOR [Suspect]
     Indication: THROMBOSIS PROPHYLAXIS
     Dosage: 3500 IU/0.2 ML
     Route: 058
     Dates: start: 20130521, end: 20130524
  10. CEFAMEZIN [Suspect]
     Indication: ANTIBIOTIC PROPHYLAXIS
     Dosage: UNK
     Route: 042
     Dates: start: 20130521, end: 20130522
  11. MORPHINE HYDROCHLORIDE [Suspect]
     Dosage: 10 MG/ML INJECTION, 10 MG TOTAL AS A SINGLE DOSE
     Route: 042
     Dates: start: 20130521, end: 20130521

REACTIONS (1)
  - Renal failure acute [Recovered/Resolved]
